FAERS Safety Report 13927351 (Version 1)
Quarter: 2017Q3

REPORT INFORMATION
  Report Type: Spontaneous
  Country: US (occurrence: US)
  Receive Date: 20170831
  Receipt Date: 20170831
  Transmission Date: 20171127
  Serious: Yes (Life-Threatening, Other)
  Sender: FDA-Public Use
  Company Number: None

PATIENT
  Age: 24 Year
  Sex: Female
  Weight: 83.9 kg

DRUGS (1)
  1. IRON DEXTRAN [Suspect]
     Active Substance: IRON DEXTRAN
     Indication: ANAEMIA
     Dosage: ?          OTHER FREQUENCY:ONCE;?
     Route: 040
     Dates: start: 20170705, end: 20170705

REACTIONS (8)
  - Back pain [None]
  - Maternal exposure during pregnancy [None]
  - Maternal drugs affecting foetus [None]
  - Dyspnoea [None]
  - Muscle contractions involuntary [None]
  - Foetal heart rate decreased [None]
  - Infusion related reaction [None]
  - Crying [None]

NARRATIVE: CASE EVENT DATE: 20170705
